FAERS Safety Report 16867738 (Version 2)
Quarter: 2019Q4

REPORT INFORMATION
  Report Type: Spontaneous
  Country: US (occurrence: US)
  Receive Date: 20190930
  Receipt Date: 20191227
  Transmission Date: 20200122
  Serious: No
  Sender: FDA-Public Use
  Company Number: US-INDIVIOR LIMITED-INDV-121340-2019

PATIENT
  Sex: Female

DRUGS (17)
  1. SUBLOCADE [Suspect]
     Active Substance: BUPRENORPHINE
     Dosage: 100MG, QMO
     Route: 065
     Dates: start: 20190617, end: 201907
  2. SUBLOCADE [Suspect]
     Active Substance: BUPRENORPHINE
     Dosage: 300MG, QMO
     Route: 065
     Dates: start: 20191003
  3. TOPAMAX [Concomitant]
     Active Substance: TOPIRAMATE
     Indication: DRUG DEPENDENCE
     Dosage: 100MG (1 IN THE MORNING AND 1/2 EVERY ONE HOUR)
     Route: 065
     Dates: start: 201812
  4. VITAMIN D                          /00107901/ [Concomitant]
     Active Substance: ERGOCALCIFEROL
     Indication: VITAMIN D DEFICIENCY
     Dosage: 3000IU, QD
     Route: 065
     Dates: start: 201903
  5. OMEPRAZOLE. [Concomitant]
     Active Substance: OMEPRAZOLE
     Indication: GASTROOESOPHAGEAL REFLUX DISEASE
     Dosage: 20 MILLIGRAM, QD
     Route: 065
     Dates: start: 201812
  6. ZOLOFT [Concomitant]
     Active Substance: SERTRALINE HYDROCHLORIDE
     Indication: DEPRESSION
     Dosage: 100 MILLIGRAM, BID
     Route: 065
     Dates: start: 201903
  7. DICLOFENAC [Concomitant]
     Active Substance: DICLOFENAC
     Indication: ARTHRITIS
     Dosage: 75MG, BID
     Route: 065
     Dates: start: 201906, end: 2019
  8. SUBLOCADE [Suspect]
     Active Substance: BUPRENORPHINE
     Dosage: 300MG, QMO
     Route: 065
     Dates: start: 20190822, end: 201909
  9. LAMICTAL [Concomitant]
     Active Substance: LAMOTRIGINE
     Indication: BIPOLAR DISORDER
     Dosage: 150MG, QD
     Route: 065
     Dates: start: 201808
  10. SUBLOCADE [Suspect]
     Active Substance: BUPRENORPHINE
     Dosage: 100MG, QMO
     Route: 065
     Dates: start: 20190722, end: 201908
  11. SUBLOCADE [Suspect]
     Active Substance: BUPRENORPHINE
     Indication: DRUG DEPENDENCE
     Dosage: 300MG, QMO
     Route: 065
     Dates: start: 20190320, end: 201904
  12. GABAPENTIN. [Concomitant]
     Active Substance: GABAPENTIN
     Indication: ANXIETY
     Dosage: 800MG, 1 TABLET TID
     Route: 065
     Dates: start: 201808
  13. NAPROXEN. [Concomitant]
     Active Substance: NAPROXEN
     Indication: PRODUCT USED FOR UNKNOWN INDICATION
     Dosage: 500MG, 1 TABLET BID
     Route: 065
     Dates: start: 20190816
  14. SUBLOCADE [Suspect]
     Active Substance: BUPRENORPHINE
     Indication: DRUG DEPENDENCE
     Dosage: 100 MILLIGRAM, QMO
     Route: 065
     Dates: start: 20190518, end: 201906
  15. IRON [Concomitant]
     Active Substance: IRON
     Indication: ANAEMIA
     Dosage: 1 TABLET , QD
     Route: 065
     Dates: start: 201906
  16. MELOXICAM. [Concomitant]
     Active Substance: MELOXICAM
     Indication: PRODUCT USED FOR UNKNOWN INDICATION
     Dosage: 15MG, PRN
  17. SUBLOCADE [Suspect]
     Active Substance: BUPRENORPHINE
     Dosage: 300MG, QMO
     Route: 065
     Dates: start: 20190423, end: 201905

REACTIONS (3)
  - Injection site swelling [Recovered/Resolved]
  - Injection site erythema [Recovered/Resolved]
  - Lack of administration site rotation [Recovered/Resolved]

NARRATIVE: CASE EVENT DATE: 2019
